FAERS Safety Report 6552769-8 (Version None)
Quarter: 2010Q1

REPORT INFORMATION
  Report Type: 
  Country: None (occurrence: None)
  Receive Date: 20100126
  Receipt Date: 20100114
  Transmission Date: 20100710
  Serious: Yes (Congenital Anomaly)
  Sender: FDA-Public Use
  Company Number: US-GILEAD-2010-0026566

PATIENT
  Sex: Female

DRUGS (3)
  1. TRUVADA [Suspect]
  2. FOSAMPRENAVIR CALCIUM [Concomitant]
  3. RITONAVIR [Concomitant]

REACTIONS (1)
  - TRISOMY 21 [None]
